FAERS Safety Report 8657456 (Version 1)
Quarter: 2020Q3

REPORT INFORMATION
  Report Type: Spontaneous
  Country: GB (occurrence: None)
  Receive Date: 20120622
  Receipt Date: 20120622
  Transmission Date: 20201105
  Serious: Yes (Hospitalization)
  Sender: FDA-Public Use
  Company Number: DSA_57932_2012

PATIENT
  Age: 47 Year
  Sex: Male

DRUGS (17)
  1. DALCETRAPIB. [Suspect]
     Active Substance: DALCETRAPIB
  2. DALCETRAPIB. [Suspect]
     Active Substance: DALCETRAPIB
  3. ASPIRIN. [Concomitant]
     Active Substance: ASPIRIN
  4. RANITIDINE. [Concomitant]
     Active Substance: RANITIDINE
  5. EZETIMIBE. [Concomitant]
     Active Substance: EZETIMIBE
  6. ISOSORBIDE MONONITRATE. [Concomitant]
     Active Substance: ISOSORBIDE MONONITRATE
  7. AMLODIPINE [Concomitant]
     Active Substance: AMLODIPINE BESYLATE
  8. DILTIAZEM. [Suspect]
     Active Substance: DILTIAZEM
     Indication: PRODUCT USED FOR UNKNOWN INDICATION
     Dosage: (DF)
     Dates: end: 2011
  9. DALCETRAPIB. [Suspect]
     Active Substance: DALCETRAPIB
     Indication: PRODUCT USED FOR UNKNOWN INDICATION
     Dosage: (5 MG)
     Dates: start: 20100426, end: 20110616
  10. GLYCERYL TRINITRATE [Concomitant]
     Active Substance: NITROGLYCERIN
  11. DALCETRAPIB. [Suspect]
     Active Substance: DALCETRAPIB
     Indication: ACUTE CORONARY SYNDROME
     Dosage: (1 DF QD ORAL)
     Route: 048
     Dates: start: 20091012
  12. DALCETRAPIB. [Suspect]
     Active Substance: DALCETRAPIB
  13. DALCETRAPIB. [Suspect]
     Active Substance: DALCETRAPIB
  14. NICORANDIL [Concomitant]
  15. CLOPIDOGREL [Concomitant]
     Active Substance: CLOPIDOGREL BISULFATE
  16. RAMIPRIL. [Concomitant]
     Active Substance: RAMIPRIL
  17. ROSUVASTATIN. [Concomitant]
     Active Substance: ROSUVASTATIN

REACTIONS (5)
  - Angina pectoris [None]
  - Cardiac stress test abnormal [None]
  - Chest pain [None]
  - Pain in extremity [None]
  - Dizziness [None]

NARRATIVE: CASE EVENT DATE: 20100325
